FAERS Safety Report 17555736 (Version 2)
Quarter: 2020Q1

REPORT INFORMATION
  Report Type: Spontaneous
  Country: US (occurrence: US)
  Receive Date: 20200318
  Receipt Date: 20200320
  Transmission Date: 20200409
  Serious: Yes (Other)
  Sender: FDA-Public Use
  Company Number: US-SHIRE-US202009439

PATIENT
  Age: 20 Year
  Sex: Female

DRUGS (2)
  1. HUMAN NORMAL IMMUNOGLOBULIN [Concomitant]
     Active Substance: HUMAN IMMUNOGLOBULIN G
     Indication: BLOOD IMMUNOGLOBULIN G DECREASED
     Dosage: UNK
  2. CUVITRU [Suspect]
     Active Substance: HUMAN IMMUNOGLOBULIN G
     Indication: PRODUCT USED FOR UNKNOWN INDICATION
     Dosage: 10 GRAM, 1X/WEEK
     Route: 065
     Dates: end: 201908

REACTIONS (3)
  - Extranodal marginal zone B-cell lymphoma (MALT type) [Recovered/Resolved]
  - Blood immunoglobulin G decreased [Unknown]
  - Lymphadenopathy [Unknown]
